FAERS Safety Report 16709717 (Version 1)
Quarter: 2019Q3

REPORT INFORMATION
  Report Type: Spontaneous
  Country: HK (occurrence: HK)
  Receive Date: 20190816
  Receipt Date: 20190816
  Transmission Date: 20191004
  Serious: Yes (Death)
  Sender: FDA-Public Use
  Company Number: HK-ASTRAZENECA-2019SF16073

PATIENT
  Sex: Female

DRUGS (1)
  1. OLAPARIB. [Suspect]
     Active Substance: OLAPARIB
     Route: 048

REACTIONS (5)
  - Mucosal ulceration [Unknown]
  - Malignant neoplasm progression [Fatal]
  - Mass [Unknown]
  - Abdominal pain upper [Unknown]
  - Rash [Unknown]
